FAERS Safety Report 17236635 (Version 1)
Quarter: 2020Q1

REPORT INFORMATION
  Report Type: Spontaneous
  Country: AU (occurrence: AU)
  Receive Date: 20200106
  Receipt Date: 20200106
  Transmission Date: 20200409
  Serious: Yes (Other)
  Sender: FDA-Public Use
  Company Number: NVSC2020AU000465

PATIENT
  Age: 23 Year
  Sex: Female

DRUGS (5)
  1. PREDNISOLONE. [Suspect]
     Active Substance: PREDNISOLONE
     Indication: LUPUS NEPHRITIS
     Dosage: UNK (HIGH DOSE)
     Route: 048
  2. CYCLOSPORINE. [Suspect]
     Active Substance: CYCLOSPORINE
     Indication: LUPUS NEPHRITIS
     Dosage: UNK
     Route: 065
  3. PREDNISOLONE. [Suspect]
     Active Substance: PREDNISOLONE
     Dosage: 25 MG DAILY
     Route: 065
  4. PREDNISOLONE. [Suspect]
     Active Substance: PREDNISOLONE
     Dosage: 5 MG DAILY OVER A 6-MONTH PERIOD
     Route: 065
  5. MYCOPHENOLATE MOFETIL. [Suspect]
     Active Substance: MYCOPHENOLATE MOFETIL
     Indication: LUPUS NEPHRITIS
     Dosage: UNK
     Route: 065

REACTIONS (10)
  - Therapeutic response decreased [Unknown]
  - Evans syndrome [Unknown]
  - Haemolytic anaemia [Unknown]
  - Intracranial pressure increased [Unknown]
  - Headache [Recovered/Resolved]
  - Vision blurred [Recovered/Resolved]
  - Thrombocytopenia [Unknown]
  - Photophobia [Unknown]
  - Product use in unapproved indication [Unknown]
  - Drug ineffective [Unknown]
